FAERS Safety Report 4428857-9 (Version None)
Quarter: 2004Q3

REPORT INFORMATION
  Report Type: 
  Country: None (occurrence: None)
  Receive Date: 20040816
  Receipt Date: 20040804
  Transmission Date: 20050211
  Serious: Yes (Hospitalization)
  Sender: FDA-Public Use
  Company Number: 2004216300US

PATIENT
  Age: 42 Year
  Sex: Female
  Weight: 91.2 kg

DRUGS (1)
  1. ROGAINE [Suspect]
     Indication: ALOPECIA
     Dosage: 1 ML, BID, TOPICAL
     Route: 061
     Dates: start: 20040101, end: 20040421

REACTIONS (5)
  - BLISTER [None]
  - HOARSENESS [None]
  - HYPERSENSITIVITY [None]
  - HYPERTRICHOSIS [None]
  - KIDNEY INFECTION [None]
